FAERS Safety Report 16469589 (Version 1)
Quarter: 2019Q3

REPORT INFORMATION
  Report Type: Spontaneous
  Country: US (occurrence: US)
  Receive Date: 20190622
  Receipt Date: 20190622
  Transmission Date: 20191004
  Serious: Yes (Disabling, Other)
  Sender: FDA-Public Use
  Company Number: None

PATIENT
  Age: 38 Year
  Sex: Male
  Weight: 99 kg

DRUGS (2)
  1. NSAID [Concomitant]
     Active Substance: UNSPECIFIED INGREDIENT
  2. PROMETHAZINE [Suspect]
     Active Substance: PROMETHAZINE HYDROCHLORIDE
     Indication: PAIN
     Dosage: ?          QUANTITY:1 TABLET(S);?
     Dates: start: 20180815, end: 20181115

REACTIONS (4)
  - Haematochezia [None]
  - Somnolence [None]
  - Anxiety [None]
  - Constipation [None]

NARRATIVE: CASE EVENT DATE: 20180815
